FAERS Safety Report 7340906-7 (Version None)
Quarter: 2011Q1

REPORT INFORMATION
  Report Type: 
  Country: None (occurrence: None)
  Receive Date: 20110309
  Receipt Date: 20110214
  Transmission Date: 20110831
  Serious: No
  Sender: FDA-Public Use
  Company Number: US-ABBOTT-11P-163-0706274-00

PATIENT
  Sex: Female
  Weight: 70.37 kg

DRUGS (2)
  1. LUPRON DEPOT [Suspect]
     Indication: PRODUCT USED FOR UNKNOWN INDICATION
     Route: 050
  2. PRENEXA [Concomitant]
     Indication: VITAMIN SUPPLEMENTATION

REACTIONS (2)
  - ACCIDENTAL EXPOSURE [None]
  - BURNING SENSATION [None]
